FAERS Safety Report 4452379-2 (Version None)
Quarter: 2004Q3

REPORT INFORMATION
  Report Type: 
  Country: None (occurrence: None)
  Receive Date: 20040915
  Receipt Date: 20040908
  Transmission Date: 20050211
  Serious: Yes (Hospitalization)
  Sender: FDA-Public Use
  Company Number: ZANA001345

PATIENT
  Age: 53 Year
  Sex: Female

DRUGS (3)
  1. TIZANIDINE HCL [Suspect]
     Indication: DRUG USE FOR UNKNOWN INDICATION
     Dosage: 3 TABLETS/DAY, ORAL
     Route: 048
     Dates: start: 20040601, end: 20040810
  2. CEROCRAL (IFENPRODIL TARTRATE) [Suspect]
     Indication: DRUG USE FOR UNKNOWN INDICATION
     Dosage: 3 TABLETS/DAY, ORAL
     Route: 048
     Dates: start: 20040601, end: 20040810
  3. METHYCOBAL (MECOBALAMIN) [Concomitant]

REACTIONS (1)
  - HEPATITIS ACUTE [None]
